FAERS Safety Report 7051879-9 (Version None)
Quarter: 2010Q4

REPORT INFORMATION
  Report Type: 
  Country: None (occurrence: None)
  Receive Date: 20101019
  Receipt Date: 20101015
  Transmission Date: 20110411
  Serious: Yes (Life-Threatening, Hospitalization)
  Sender: FDA-Public Use
  Company Number: GXKR2009DE04075

PATIENT
  Age: 68 Year
  Sex: Female
  Weight: 102 kg

DRUGS (11)
  1. SPIRONOLACTONE [Suspect]
     Indication: CARDIAC FAILURE
     Dosage: 25 MG, QD
     Route: 048
     Dates: start: 20070101, end: 20080508
  2. TORSEMIDE [Interacting]
     Indication: HYPERTENSION
     Dosage: 10 MG, QD
     Route: 048
     Dates: start: 20041101
  3. XIPAMIDE (NGX) [Interacting]
     Indication: HYPERTENSION
     Dosage: 40 MG, QD
     Route: 048
     Dates: start: 20070101, end: 20080508
  4. ACETYLSALICYLIC ACID SRT [Interacting]
     Dosage: 100 MG, QD
     Route: 048
     Dates: start: 20040101, end: 20080507
  5. RAMICARD [Interacting]
     Indication: HYPERTENSION
     Dosage: 10 MG, QD
     Route: 048
     Dates: start: 20041101, end: 20080508
  6. IBUPROFEN TABLETS [Interacting]
     Indication: PAIN
     Route: 048
  7. BISOBETA [Interacting]
     Indication: CORONARY ARTERY DISEASE
     Dosage: UNK
     Route: 048
     Dates: start: 20041101, end: 20080407
  8. ACTRAPID PENFILL [Concomitant]
     Route: 058
  9. PLAVIX [Concomitant]
     Route: 048
  10. PRAVASTATIN [Concomitant]
     Route: 048
  11. PROTAPHAN PENFILL [Concomitant]
     Route: 058

REACTIONS (1)
  - RENAL FAILURE ACUTE [None]
